FAERS Safety Report 7244329-0 (Version None)
Quarter: 2011Q1

REPORT INFORMATION
  Report Type: 
  Country: None (occurrence: None)
  Receive Date: 20110125
  Receipt Date: 20110120
  Transmission Date: 20110831
  Serious: Yes (Life-Threatening)
  Sender: FDA-Public Use
  Company Number: DE-SANOFI-AVENTIS-2011SA003777

PATIENT
  Age: 76 Year
  Sex: Female
  Weight: 58 kg

DRUGS (5)
  1. LISINOPRIL [Suspect]
     Route: 048
     Dates: start: 20040101
  2. SPIRONOLACTONE [Suspect]
     Route: 048
     Dates: start: 20060101
  3. LASIX [Concomitant]
     Route: 048
     Dates: start: 20040101
  4. AMARYL [Suspect]
     Indication: TYPE 2 DIABETES MELLITUS
     Route: 048
     Dates: start: 20010101
  5. LASIX [Concomitant]
     Route: 048
     Dates: start: 20040101

REACTIONS (2)
  - HYPERKALAEMIA [None]
  - HYPOGLYCAEMIA [None]
